FAERS Safety Report 5144916-X (Version None)
Quarter: 2006Q4

REPORT INFORMATION
  Report Type: 
  Country: None (occurrence: None)
  Receive Date: 20061107
  Receipt Date: 20061025
  Transmission Date: 20070319
  Serious: Yes (Other)
  Sender: FDA-Public Use
  Company Number: 2006GB01923

PATIENT
  Sex: Male

DRUGS (3)
  1. PULMICORT NEBULISER [Suspect]
     Dosage: 2 TO 3 HOURS AT A TIME FOR A COUPLE OF WEEKS AT A TIME
     Route: 055
  2. CHEMOTHERAPY [Concomitant]
     Indication: LEUKAEMIA
  3. LOTS OF TOXIC MEDICATIONS [Concomitant]

REACTIONS (1)
  - PULMONARY HYPERTENSION [None]
